FAERS Safety Report 21990056 (Version 1)
Quarter: 2023Q1

REPORT INFORMATION
  Report Type: Other
  Country: US (occurrence: US)
  Receive Date: 20230214
  Receipt Date: 20230214
  Transmission Date: 20230417
  Serious: Yes (Life-Threatening, Hospitalization, Disabling, Other)
  Sender: FDA-Public Use
  Company Number: US-SERVIER-S23001374

PATIENT

DRUGS (6)
  1. ONCASPAR [Suspect]
     Active Substance: PEGASPARGASE
     Indication: T-cell type acute leukaemia
     Dosage: 2500 U/M2, D4, 18
     Route: 042
     Dates: start: 202206, end: 202207
  2. CYTARABINE [Suspect]
     Active Substance: CYTARABINE
     Indication: T-cell type acute leukaemia
     Dosage: D0 OR 1
     Route: 037
     Dates: start: 202206, end: 202206
  3. DAUNORUBICIN [Suspect]
     Active Substance: DAUNORUBICIN
     Indication: T-cell type acute leukaemia
     Dosage: D1,8,15,22
     Route: 042
     Dates: start: 202206, end: 202207
  4. DEXAMETHASONE [Suspect]
     Active Substance: DEXAMETHASONE
     Indication: T-cell type acute leukaemia
     Dosage: D1-28, BID
     Route: 048
     Dates: start: 202206, end: 202207
  5. METHOTREXATE [Suspect]
     Active Substance: METHOTREXATE
     Indication: T-cell type acute leukaemia
     Dosage: D8, 15,22,29
     Route: 037
     Dates: start: 202206, end: 202207
  6. VINCRISTINE [Suspect]
     Active Substance: VINCRISTINE
     Indication: T-cell type acute leukaemia
     Dosage: D1,8,15,22
     Route: 042
     Dates: start: 202206, end: 202207

REACTIONS (5)
  - Hyperglycaemic hyperosmolar nonketotic syndrome [Recovered/Resolved]
  - Pancreatitis acute [Recovered/Resolved]
  - Hyperglycaemia [Recovered/Resolved]
  - Hypertriglyceridaemia [Recovered/Resolved]
  - Post intensive care syndrome [Recovering/Resolving]

NARRATIVE: CASE EVENT DATE: 20220701
